FAERS Safety Report 12532755 (Version 1)
Quarter: 2016Q3

REPORT INFORMATION
  Report Type: Report from Study
  Country: US (occurrence: US)
  Receive Date: 20160706
  Receipt Date: 20160706
  Transmission Date: 20161109
  Serious: Yes (Hospitalization)
  Sender: FDA-Public Use
  Company Number: US-PURDUE-USA-2016-0132006

PATIENT
  Sex: Male

DRUGS (2)
  1. OXYCONTIN [Suspect]
     Active Substance: OXYCODONE HYDROCHLORIDE
     Indication: INTERVERTEBRAL DISC DEGENERATION
  2. OXYCONTIN [Suspect]
     Active Substance: OXYCODONE HYDROCHLORIDE
     Indication: PAIN
     Dosage: 80 MG, Q12H
     Route: 048
     Dates: start: 20160520, end: 20160628

REACTIONS (3)
  - Pulmonary mass [Unknown]
  - Pneumothorax [Unknown]
  - Inadequate analgesia [Unknown]
